FAERS Safety Report 11156431 (Version 1)
Quarter: 2015Q2

REPORT INFORMATION
  Report Type: Spontaneous
  Country: US (occurrence: None)
  Receive Date: 20150601
  Receipt Date: 20150601
  Transmission Date: 20150821
  Serious: Yes (Life-Threatening, Disabling, Other)
  Sender: FDA-Public Use
  Company Number: None

PATIENT
  Age: 51 Year
  Sex: Female
  Weight: 91.63 kg

DRUGS (9)
  1. LEVOTHROXIN [Concomitant]
  2. RANDITINE [Concomitant]
  3. VITAMIN B12 [Concomitant]
     Active Substance: CYANOCOBALAMIN
  4. ATENOL [Concomitant]
     Active Substance: ATENOLOL
  5. VITAMIN D [Concomitant]
     Active Substance: CHOLECALCIFEROL
  6. ATORVASTATIN [Suspect]
     Active Substance: ATORVASTATIN
     Indication: CEREBROVASCULAR ACCIDENT
     Dosage: 1 TABLET
     Route: 048
     Dates: start: 20150421, end: 20150512
  7. XANAX [Concomitant]
     Active Substance: ALPRAZOLAM
  8. PROZAC [Concomitant]
     Active Substance: FLUOXETINE HYDROCHLORIDE
  9. MULTIPLE VITAMIN [Concomitant]
     Active Substance: VITAMINS

REACTIONS (8)
  - Chromaturia [None]
  - Pain [None]
  - Muscular weakness [None]
  - Myalgia [None]
  - Abdominal pain upper [None]
  - Urinary tract infection [None]
  - Discomfort [None]
  - Memory impairment [None]

NARRATIVE: CASE EVENT DATE: 20150512
